FAERS Safety Report 5842547-7 (Version None)
Quarter: 2008Q3

REPORT INFORMATION
  Report Type: 
  Country: None (occurrence: None)
  Receive Date: 20080812
  Receipt Date: 20080731
  Transmission Date: 20090109
  Serious: Yes (Other)
  Sender: FDA-Public Use
  Company Number: US-PFIZER INC-2007061746

PATIENT
  Sex: Male
  Weight: 157.9 kg

DRUGS (21)
  1. CHANTIX [Interacting]
     Indication: SMOKING CESSATION THERAPY
     Route: 048
  2. NICORETTE [Suspect]
  3. THORAZINE [Interacting]
     Indication: MENTAL DISORDER
     Route: 048
  4. MARIJUANA [Suspect]
  5. ZANAFLEX [Suspect]
  6. LAMICTAL [Concomitant]
     Indication: MENTAL DISORDER
     Route: 048
  7. WELLBUTRIN [Concomitant]
     Indication: MENTAL DISORDER
     Route: 048
  8. ABILIFY [Concomitant]
     Indication: MENTAL DISORDER
     Route: 048
  9. STRATTERA [Concomitant]
     Indication: MENTAL DISORDER
     Route: 048
  10. LISINOPRIL [Concomitant]
     Route: 048
  11. INSULIN [Concomitant]
     Indication: TYPE 1 DIABETES MELLITUS
  12. ZOCOR [Concomitant]
     Indication: BLOOD CHOLESTEROL INCREASED
     Route: 048
  13. GEMFIBROZIL [Concomitant]
     Indication: LIPIDS INCREASED
     Route: 048
  14. SYNTHROID [Concomitant]
     Indication: HYPOTHYROIDISM
     Route: 048
  15. AMMONIUM LACTATE [Concomitant]
  16. BACLOFEN [Concomitant]
  17. COGENTIN [Concomitant]
  18. ARTANE [Concomitant]
  19. INSULIN ASPART [Concomitant]
  20. ISOPHANE INSULIN [Concomitant]
  21. GENERAL NUTRIENTS/MINERALS/VITAMINS [Concomitant]

REACTIONS (31)
  - ABNORMAL DREAMS [None]
  - ADVERSE DRUG REACTION [None]
  - AGITATION [None]
  - ARTERIOSCLEROSIS [None]
  - ARTHRALGIA [None]
  - BACK PAIN [None]
  - COUGH [None]
  - DIABETES MELLITUS INADEQUATE CONTROL [None]
  - DIZZINESS [None]
  - DRUG DEPENDENCE [None]
  - DRUG INTERACTION [None]
  - DRY MOUTH [None]
  - DYSGEUSIA [None]
  - DYSPNOEA EXERTIONAL [None]
  - FEELING ABNORMAL [None]
  - HALLUCINATION [None]
  - MANIA [None]
  - MOOD SWINGS [None]
  - MOVEMENT DISORDER [None]
  - MUSCLE DISORDER [None]
  - MUSCLE FATIGUE [None]
  - MUSCLE TIGHTNESS [None]
  - MYALGIA [None]
  - OBESITY [None]
  - PAIN [None]
  - PELVIC PAIN [None]
  - SLEEP DISORDER [None]
  - SOMNOLENCE [None]
  - SUICIDAL IDEATION [None]
  - TOBACCO USER [None]
  - TOBACCO WITHDRAWAL SYMPTOMS [None]
